FAERS Safety Report 16475383 (Version 2)
Quarter: 2019Q3

REPORT INFORMATION
  Report Type: Spontaneous
  Country: JP (occurrence: JP)
  Receive Date: 20190625
  Receipt Date: 20190829
  Transmission Date: 20191004
  Serious: Yes (Hospitalization, Other)
  Sender: FDA-Public Use
  Company Number: JP-BRISTOL-MYERS SQUIBB COMPANY-BMS-2019-061222

PATIENT
  Sex: Female
  Weight: 41 kg

DRUGS (3)
  1. ELIQUIS [Suspect]
     Active Substance: APIXABAN
     Indication: EMBOLISM VENOUS
     Dosage: 5 MILLIGRAM, BID
     Route: 048
     Dates: start: 20190502, end: 20190602
  2. ELIQUIS [Suspect]
     Active Substance: APIXABAN
     Indication: DEEP VEIN THROMBOSIS
     Route: 065
  3. FERROUS CITRATE NA [Concomitant]
     Active Substance: SODIUM FERROUS CITRATE
     Indication: HYPOCHROMIC ANAEMIA
     Dosage: 100 MILLIGRAM, BID
     Route: 048
     Dates: start: 20190506

REACTIONS (3)
  - Gastrointestinal haemorrhage [Recovering/Resolving]
  - Anaemia of malignant disease [Recovering/Resolving]
  - Malignant neoplasm progression [Unknown]
